FAERS Safety Report 5010280-X (Version None)
Quarter: 2006Q2

REPORT INFORMATION
  Report Type: 
  Country: None (occurrence: None)
  Receive Date: 20060404
  Receipt Date: 20060118
  Transmission Date: 20061013
  Serious: Yes (Life-Threatening)
  Sender: FDA-Public Use
  Company Number: US200512003358

PATIENT
  Age: 15 Year
  Sex: Male
  Weight: 65.8 kg

DRUGS (3)
  1. CYMBALTA [Suspect]
     Indication: ANTIDEPRESSANT THERAPY
     Dosage: 30 MG, DAILY (1/D), ORAL
     Route: 048
     Dates: start: 20051119, end: 20051121
  2. NEURONTIN [Concomitant]
  3. EFFEXOR [Concomitant]

REACTIONS (3)
  - AGITATION [None]
  - DEPRESSED MOOD [None]
  - SUICIDAL IDEATION [None]
